FAERS Safety Report 5449952-1 (Version None)
Quarter: 2007Q3

REPORT INFORMATION
  Report Type: 
  Country: None (occurrence: None)
  Receive Date: 20070803
  Receipt Date: 20070523
  Transmission Date: 20080115
  Serious: No
  Sender: FDA-Public Use
  Company Number: 200711062BWH

PATIENT
  Age: 53 Year
  Sex: Male

DRUGS (6)
  1. NEXAVAR [Suspect]
     Indication: METASTASES TO LUNG
     Dosage: 400 MG, BID, ORAL; 400 MG, BID, ORAL; 400 MG, BID, ORAL
     Route: 048
     Dates: start: 20050101, end: 20060101
  2. NEXAVAR [Suspect]
     Indication: RENAL CELL CARCINOMA STAGE UNSPECIFIED
     Dosage: 400 MG, BID, ORAL; 400 MG, BID, ORAL; 400 MG, BID, ORAL
     Route: 048
     Dates: start: 20050101, end: 20060101
  3. NEXAVAR [Suspect]
     Indication: METASTASES TO LUNG
     Dosage: 400 MG, BID, ORAL; 400 MG, BID, ORAL; 400 MG, BID, ORAL
     Route: 048
     Dates: start: 20060101
  4. NEXAVAR [Suspect]
     Indication: RENAL CELL CARCINOMA STAGE UNSPECIFIED
     Dosage: 400 MG, BID, ORAL; 400 MG, BID, ORAL; 400 MG, BID, ORAL
     Route: 048
     Dates: start: 20060101
  5. NEXAVAR [Suspect]
     Indication: METASTASES TO LUNG
     Dosage: 400 MG, BID, ORAL; 400 MG, BID, ORAL; 400 MG, BID, ORAL
     Route: 048
     Dates: start: 20070521
  6. NEXAVAR [Suspect]
     Indication: RENAL CELL CARCINOMA STAGE UNSPECIFIED
     Dosage: 400 MG, BID, ORAL; 400 MG, BID, ORAL; 400 MG, BID, ORAL
     Route: 048
     Dates: start: 20070521

REACTIONS (4)
  - ABDOMINAL PAIN [None]
  - DYSPNOEA [None]
  - GLOSSODYNIA [None]
  - LIPASE INCREASED [None]
